FAERS Safety Report 11282592 (Version 1)
Quarter: 2015Q3

REPORT INFORMATION
  Report Type: Spontaneous
  Country: US (occurrence: None)
  Receive Date: 20150716
  Receipt Date: 20150716
  Transmission Date: 20151125
  Serious: Yes (Other)
  Sender: FDA-Public Use
  Company Number: DEP_03176_2015

PATIENT
  Sex: Male

DRUGS (1)
  1. GRALISE [Suspect]
     Active Substance: GABAPENTIN
     Indication: PRODUCT USED FOR UNKNOWN INDICATION
     Dosage: STARTER PACK, TITRATED UP TO
     Route: 048
     Dates: start: 20150624

REACTIONS (7)
  - Decreased activity [None]
  - Hypersomnia [None]
  - Dizziness [None]
  - Nasal dryness [None]
  - Urine flow decreased [None]
  - Dry throat [None]
  - Dry mouth [None]

NARRATIVE: CASE EVENT DATE: 201506
